FAERS Safety Report 21876453 (Version 12)
Quarter: 2023Q4

REPORT INFORMATION
  Report Type: Report from Study
  Country: GB (occurrence: None)
  Receive Date: 20230118
  Receipt Date: 20231122
  Transmission Date: 20240110
  Serious: Yes (Hospitalization)
  Sender: FDA-Public Use
  Company Number: GB-ROCHE-3261967

PATIENT
  Age: 79 Year
  Sex: Female

DRUGS (18)
  1. ATEZOLIZUMAB [Suspect]
     Active Substance: ATEZOLIZUMAB
     Indication: Non-small cell lung cancer metastatic
     Dosage: MOST RECENT DOSE OF STUDY DRUG PRIOR TO AE 29/DEC/2022
     Route: 041
     Dates: start: 20221229
  2. BEVACIZUMAB [Suspect]
     Active Substance: BEVACIZUMAB
     Indication: Non-small cell lung cancer metastatic
     Dosage: START DATE OF MOST RECENT DOSE OF STUDY DRUG PRIOR TO AE: 29/DEC/2022
     Route: 042
     Dates: start: 20221229
  3. APIXABAN [Concomitant]
     Active Substance: APIXABAN
     Indication: Atrial fibrillation
     Route: 048
     Dates: start: 20160323
  4. LANSOPRAZOLE [Concomitant]
     Active Substance: LANSOPRAZOLE
     Indication: Dyspepsia
     Route: 048
     Dates: start: 20121130
  5. TRELEGY ELLIPTA [Concomitant]
     Active Substance: FLUTICASONE FUROATE\UMECLIDINIUM BROMIDE\VILANTEROL TRIFENATATE
     Indication: Chronic obstructive pulmonary disease
     Dosage: DRUG DOSE FIRST ADMINISTERED IS 1 INHALATION ;ONGOING: YES
     Route: 048
     Dates: start: 20221109
  6. AMITRIPTYLINE [Concomitant]
     Active Substance: AMITRIPTYLINE
     Indication: Musculoskeletal pain
     Dosage: YES
     Route: 048
     Dates: start: 20221006
  7. OXYCODONE [Concomitant]
     Active Substance: OXYCODONE
     Indication: Musculoskeletal pain
     Route: 048
     Dates: start: 20230104
  8. ACETAMINOPHEN [Concomitant]
     Active Substance: ACETAMINOPHEN
     Indication: Musculoskeletal pain
     Route: 048
     Dates: start: 20230110
  9. ACETAMINOPHEN [Concomitant]
     Active Substance: ACETAMINOPHEN
     Indication: Constipation
     Route: 042
     Dates: start: 20230125
  10. AMOXICILLIN\CLAVULANATE POTASSIUM [Concomitant]
     Active Substance: AMOXICILLIN\CLAVULANATE POTASSIUM
     Indication: Infection
     Dosage: MEDICATION ONGOING: YES
     Route: 048
     Dates: start: 20230110, end: 20230115
  11. VERAPAMIL [Concomitant]
     Active Substance: VERAPAMIL HYDROCHLORIDE
     Indication: Musculoskeletal pain
     Route: 048
     Dates: start: 20160503
  12. POLYETHYLENE GLYCOL 3350\POTASSIUM CHLORIDE\SODIUM BICARBONATE\SODIUM [Concomitant]
     Active Substance: POLYETHYLENE GLYCOL 3350\POTASSIUM CHLORIDE\SODIUM BICARBONATE\SODIUM CHLORIDE
     Route: 048
     Dates: start: 20230125
  13. METOCLOPRAMIDE [Concomitant]
     Active Substance: METOCLOPRAMIDE
     Route: 042
     Dates: start: 20230126
  14. SODIUM CHLORIDE [Concomitant]
     Active Substance: SODIUM CHLORIDE
     Indication: Constipation
     Route: 042
     Dates: start: 20230125
  15. BISACODYL [Concomitant]
     Active Substance: BISACODYL
     Indication: Constipation
     Route: 048
     Dates: start: 20230125
  16. MINERAL OIL [Concomitant]
     Active Substance: MINERAL OIL
     Indication: Dry skin
     Route: 061
     Dates: start: 202301
  17. LEVOTHYROXINE [Concomitant]
     Active Substance: LEVOTHYROXINE
     Indication: Hypothyroidism
     Dosage: 125 UG
     Route: 048
     Dates: start: 20031008
  18. FLUCLOXACILLIN [Concomitant]
     Active Substance: FLUCLOXACILLIN
     Indication: Cellulitis
     Dosage: OTHER
     Route: 048
     Dates: end: 20230411

REACTIONS (1)
  - Arthralgia [Recovered/Resolved]

NARRATIVE: CASE EVENT DATE: 20230110
